FAERS Safety Report 23697386 (Version 2)
Quarter: 2024Q2

REPORT INFORMATION
  Report Type: Report from Study
  Country: US (occurrence: US)
  Receive Date: 20240402
  Receipt Date: 20240509
  Transmission Date: 20240716
  Serious: Yes (Other)
  Sender: FDA-Public Use
  Company Number: US-002147023-NVSC2024US025577

PATIENT
  Sex: Male
  Weight: 93.424 kg

DRUGS (15)
  1. ENTRESTO [Suspect]
     Active Substance: SACUBITRIL\VALSARTAN
     Indication: Chronic left ventricular failure
     Dosage: 24/26MG, BID (180 TABLETS, REFILLS 4)
     Route: 048
     Dates: start: 2023
  2. ENTRESTO [Suspect]
     Active Substance: SACUBITRIL\VALSARTAN
     Dosage: 49/51MG, BID
     Route: 065
     Dates: start: 2023
  3. DULOXETINE [Concomitant]
     Active Substance: DULOXETINE
     Indication: Mental disorder
     Route: 065
  4. DULOXETINE [Concomitant]
     Active Substance: DULOXETINE
     Indication: Neuropathy peripheral
  5. LOSARTAN POTASSIUM [Concomitant]
     Active Substance: LOSARTAN POTASSIUM
     Indication: Chronic left ventricular failure
     Dosage: 1 DOSAGE FORM, QD
     Route: 048
  6. DILTIAZEM [Concomitant]
     Active Substance: DILTIAZEM
     Indication: Chronic left ventricular failure
     Dosage: 1 DOSAGE FORM, QD (CAPSULE EXTENDED RELEASE 24 HOUR)
     Route: 048
  7. METOPROLOL SUCCINATE [Concomitant]
     Active Substance: METOPROLOL SUCCINATE
     Indication: Product used for unknown indication
     Dosage: 1 DOSAGE FORM, QD ( ER TABLET EXTENDED RELEASE, 90 TABLETS, REFILLS 4)
     Route: 048
  8. SPIRONOLACTONE [Concomitant]
     Active Substance: SPIRONOLACTONE
     Indication: Chronic left ventricular failure
     Dosage: 1 DOSAGE FORM, QD (90 TABLETS, REFILLS 4)
     Route: 048
  9. FUROSEMIDE [Concomitant]
     Active Substance: FUROSEMIDE
     Indication: Chronic left ventricular failure
     Dosage: 1 DOSAGE FORM, BID (18- TABLETS, REFILLS 4)
     Route: 048
  10. FUROSEMIDE [Concomitant]
     Active Substance: FUROSEMIDE
     Dosage: 1 DOSAGE FORM, BID
     Route: 048
  11. NICOTINE [Concomitant]
     Active Substance: NICOTINE
     Indication: Tobacco abuse
     Dosage: 1 DOSAGE FORM, QD (STEP 1 PATCH 24 HR, 21 MG/24 HR, 1 PATCH TO SKIN)
     Route: 062
  12. NICOTINE [Concomitant]
     Active Substance: NICOTINE
     Dosage: 1 DOSAGE FORM, QD (STEP 2 PATCH 24 HR, 14 MG/24 HR, 1 PATCH TO SKIN)
     Route: 062
  13. NICOTINE [Concomitant]
     Active Substance: NICOTINE
     Dosage: 1 DOSAGE FORM, QD (STEP 3 PATCH 24 HR, 7 MG/24 HR, 1 PATCH TO SKIN)
     Route: 062
  14. INSULIN NOS [Concomitant]
     Active Substance: INSULIN NOS
     Indication: Type 2 diabetes mellitus
     Dosage: UNK
     Route: 065
  15. TORSEMIDE [Concomitant]
     Active Substance: TORSEMIDE
     Indication: Chronic left ventricular failure
     Dosage: UNK
     Route: 065

REACTIONS (4)
  - Loss of consciousness [Unknown]
  - Dyspnoea [Unknown]
  - Vital functions abnormal [Unknown]
  - Visual field defect [Unknown]
